FAERS Safety Report 5505628-3 (Version None)
Quarter: 2007Q4

REPORT INFORMATION
  Report Type: 
  Country: None (occurrence: None)
  Receive Date: 20071102
  Receipt Date: 20071022
  Transmission Date: 20080405
  Serious: Yes (Other)
  Sender: FDA-Public Use
  Company Number: ZA-PFIZER INC-2007088597

PATIENT
  Sex: Female

DRUGS (3)
  1. NEURONTIN [Suspect]
     Indication: MOOD ALTERED
     Route: 048
  2. TOPAMAX [Concomitant]
     Route: 048
  3. TRILEPTAL [Concomitant]
     Route: 048

REACTIONS (2)
  - EPILEPSY [None]
  - OFF LABEL USE [None]
